FAERS Safety Report 6706336-3 (Version None)
Quarter: 2010Q2

REPORT INFORMATION
  Report Type: 
  Country: None (occurrence: None)
  Receive Date: 20100430
  Receipt Date: 20100430
  Transmission Date: 20101027
  Serious: Yes (Life-Threatening, Hospitalization)
  Sender: FDA-Public Use
  Company Number: None

PATIENT
  Age: 72 Year
  Sex: Male

DRUGS (1)
  1. LISINOPRIL [Suspect]
     Dosage: LISINOPRIL DAILY PO
     Route: 048

REACTIONS (3)
  - ANGIOEDEMA [None]
  - HYPERSENSITIVITY [None]
  - RESPIRATORY DISORDER [None]
